FAERS Safety Report 7718214-1 (Version None)
Quarter: 2011Q3

REPORT INFORMATION
  Report Type: 
  Country: None (occurrence: None)
  Receive Date: 20110830
  Receipt Date: 20110819
  Transmission Date: 20111222
  Serious: Yes (Hospitalization)
  Sender: FDA-Public Use
  Company Number: PHHO2011DE14123

PATIENT
  Sex: Male
  Weight: 93 kg

DRUGS (8)
  1. BASAL-H-INSULIN [Concomitant]
     Indication: DIABETES MELLITUS
     Dosage: 30 IE, QD
     Dates: start: 20081201
  2. NOVORAPID [Concomitant]
     Indication: DIABETES MELLITUS
     Dosage: UNK
     Route: 058
     Dates: start: 20081201
  3. PREDNISOLONE [Concomitant]
     Indication: RASH
     Dosage: 0.25 G, UNK
     Route: 061
     Dates: start: 20100902
  4. THYRONAJOD [Concomitant]
     Indication: HYPERTHYROIDISM
     Dosage: 50 MG, QD
     Route: 048
     Dates: start: 20070101
  5. ALLOPURINOL [Concomitant]
     Indication: BLOOD URIC ACID DECREASED
     Dosage: 300 MG, QD
     Route: 048
     Dates: start: 20101015
  6. CAPTOPRIL [Concomitant]
     Indication: HYPERTENSION
     Dosage: 300 MG, QD
     Route: 048
     Dates: start: 20070101
  7. TASIGNA [Suspect]
     Indication: CHRONIC MYELOID LEUKAEMIA
     Dosage: 600 MG, BID
     Route: 048
     Dates: start: 20080818
  8. ASPIRIN [Concomitant]
     Dosage: 100 MG, QD
     Route: 048
     Dates: start: 20070101

REACTIONS (1)
  - LIPOSARCOMA [None]
